FAERS Safety Report 13678859 (Version 2)
Quarter: 2017Q3

REPORT INFORMATION
  Report Type: Spontaneous
  Country: JP (occurrence: JP)
  Receive Date: 20170622
  Receipt Date: 20170713
  Transmission Date: 20171127
  Serious: Yes (Other)
  Sender: FDA-Public Use
  Company Number: JP-PFIZER INC-2017267986

PATIENT
  Age: 81 Year
  Sex: Female

DRUGS (5)
  1. VITAMINS NOS [Concomitant]
     Active Substance: VITAMINS
     Dosage: 5 UG, 2X/DAY
     Route: 048
  2. LIMAPROST ALFADEX [Concomitant]
     Active Substance: LIMAPROST
  3. TRAMCET [Concomitant]
     Active Substance: ACETAMINOPHEN\TRAMADOL
  4. CELECOX [Concomitant]
     Active Substance: CELECOXIB
     Dosage: 100 MG, 2X/DAY
     Route: 048
  5. LYRICA [Suspect]
     Active Substance: PREGABALIN
     Route: 048

REACTIONS (1)
  - Bradycardia [Unknown]
